FAERS Safety Report 5694409-6 (Version None)
Quarter: 2008Q2

REPORT INFORMATION
  Report Type: 
  Country: None (occurrence: None)
  Receive Date: 20080403
  Receipt Date: 20080403
  Transmission Date: 20081010
  Serious: Yes (Other)
  Sender: FDA-Public Use
  Company Number: None

PATIENT
  Age: 64 Year
  Sex: Female
  Weight: 78.4723 kg

DRUGS (1)
  1. MEFLOQUINE [Suspect]
     Indication: FOREIGN TRAVEL
     Dosage: 1 TABLET 1 PER WEEK
     Dates: start: 20080110, end: 20080210

REACTIONS (8)
  - ASTHENIA [None]
  - BALANCE DISORDER [None]
  - BLOOD CHOLESTEROL INCREASED [None]
  - DIZZINESS [None]
  - DRY MOUTH [None]
  - HYPOTENSION [None]
  - PARAESTHESIA [None]
  - PHARMACEUTICAL PRODUCT COMPLAINT [None]
